FAERS Safety Report 17812356 (Version 1)
Quarter: 2020Q2

REPORT INFORMATION
  Report Type: Spontaneous
  Country: US (occurrence: US)
  Receive Date: 20200519
  Receipt Date: 20200519
  Transmission Date: 20200714
  Serious: Yes (Life-Threatening)
  Sender: FDA-Public Use
  Company Number: None

PATIENT

DRUGS (3)
  1. OMEPRAZOLE. [Suspect]
     Active Substance: OMEPRAZOLE
  2. DOFETILIDE. [Suspect]
     Active Substance: DOFETILIDE
  3. METRONIDAZOLE. [Suspect]
     Active Substance: METRONIDAZOLE

REACTIONS (10)
  - Pain in jaw [None]
  - Back pain [None]
  - Heart rate irregular [None]
  - Chest pain [None]
  - Drug interaction [None]
  - Atrial fibrillation [None]
  - Nervousness [None]
  - Heart rate increased [None]
  - Nausea [None]
  - Insomnia [None]
